FAERS Safety Report 13342758 (Version 14)
Quarter: 2019Q3

REPORT INFORMATION
  Report Type: Report from Study
  Country: JP (occurrence: JP)
  Receive Date: 20170316
  Receipt Date: 20190805
  Transmission Date: 20191004
  Serious: Yes (Death, Hospitalization, Other)
  Sender: FDA-Public Use
  Company Number: JP-BRISTOL-MYERS SQUIBB COMPANY-BMS-2016-111083

PATIENT
  Age: 76 Year
  Sex: Male
  Weight: 73 kg

DRUGS (6)
  1. PAZOPANIB HYDROCHLORIDE [Concomitant]
     Active Substance: PAZOPANIB HYDROCHLORIDE
     Indication: METASTATIC RENAL CELL CARCINOMA
     Dosage: 400 MG, UNK
     Route: 065
     Dates: start: 2017, end: 2017
  2. NAFTOPIDIL [Concomitant]
     Active Substance: NAFTOPIDIL
     Indication: PRODUCT USED FOR UNKNOWN INDICATION
     Dosage: 25 MILLIGRAM, QD
     Route: 065
  3. ARGAMATE [Concomitant]
     Active Substance: CALCIUM POLYSTYRENE SULFONATE
     Indication: PRODUCT USED FOR UNKNOWN INDICATION
     Dosage: 25 GRAM, QD
     Route: 048
  4. MAGNESIUM OXIDE. [Concomitant]
     Active Substance: MAGNESIUM OXIDE
     Indication: PRODUCT USED FOR UNKNOWN INDICATION
     Dosage: 330 MILLIGRAM, QD
     Route: 065
  5. NIVOLUMAB [Suspect]
     Active Substance: NIVOLUMAB
     Indication: METASTATIC RENAL CELL CARCINOMA
     Dosage: 3 UNK, UNK
     Route: 041
     Dates: start: 20161203, end: 20170403
  6. CORTRIL [Concomitant]
     Active Substance: HYDROCORTISONE
     Indication: PRODUCT USED FOR UNKNOWN INDICATION
     Dosage: 5 MILLIGRAM, QD
     Route: 065
     Dates: start: 200810

REACTIONS (6)
  - Vomiting [Recovered/Resolved]
  - Decreased appetite [Recovered/Resolved]
  - Off label use [Unknown]
  - Malignant neoplasm progression [Fatal]
  - Disseminated intravascular coagulation [Recovered/Resolved]
  - Shock [Unknown]

NARRATIVE: CASE EVENT DATE: 2017
